FAERS Safety Report 21684834 (Version 1)
Quarter: 2022Q4

REPORT INFORMATION
  Report Type: Report from Study
  Country: PR (occurrence: PR)
  Receive Date: 20221205
  Receipt Date: 20221205
  Transmission Date: 20230113
  Serious: No
  Sender: FDA-Public Use
  Company Number: PR-ABBVIE-4180678

PATIENT
  Sex: Female
  Weight: 62.595 kg

DRUGS (2)
  1. HUMIRA [Suspect]
     Active Substance: ADALIMUMAB
     Indication: Crohn^s disease
     Dosage: 40MG/0.8ML
     Route: 058
     Dates: start: 20150629
  2. HUMIRA [Suspect]
     Active Substance: ADALIMUMAB
     Dosage: 40MG/0.4ML
     Route: 058
     Dates: end: 2021

REACTIONS (5)
  - Herpes ophthalmic [Recovered/Resolved]
  - Folliculitis [Recovered/Resolved]
  - Psoriasis [Not Recovered/Not Resolved]
  - Seborrhoea [Recovered/Resolved]
  - Body tinea [Recovered/Resolved]

NARRATIVE: CASE EVENT DATE: 20210101
